FAERS Safety Report 4630888-0 (Version None)
Quarter: 2005Q2

REPORT INFORMATION
  Report Type: 
  Country: None (occurrence: None)
  Receive Date: 20050406
  Receipt Date: 20050328
  Transmission Date: 20051028
  Serious: Yes (Other)
  Sender: FDA-Public Use
  Company Number: HQWYE472115NOV04

PATIENT
  Age: 40 Year
  Sex: Female
  Weight: 72.64 kg

DRUGS (2)
  1. EFFEXOR XR (VENLAFAXINE HYDROCHLORIDE, CAPSULE, EXTEDED RELEASE) [Suspect]
     Indication: DEPRESSION
     Dosage: 225 MG 1X PER 1 DAY ORAL
     Route: 048
     Dates: start: 19970101, end: 20040901
  2. GOODYS (ACETYLSALICYLIC ACID /CAFFEINE/PARACETAMOL, POWDER) [Suspect]
     Indication: HEADACHE
     Dosage: 1 PACKET AS NEEDED FOR HEADACHE

REACTIONS (10)
  - CHILLS [None]
  - DRUG WITHDRAWAL SYNDROME [None]
  - DYSKINESIA [None]
  - HEADACHE [None]
  - HYPOTRICHOSIS [None]
  - MYOCLONUS [None]
  - PLATELET AGGREGATION ABNORMAL [None]
  - RASH [None]
  - THROMBOCYTOPENIA [None]
  - TREMOR [None]
